FAERS Safety Report 4337096-1 (Version None)
Quarter: 2004Q2

REPORT INFORMATION
  Report Type: 
  Country: None (occurrence: None)
  Receive Date: 20040408
  Receipt Date: 20040324
  Transmission Date: 20050107
  Serious: Yes (Hospitalization)
  Sender: FDA-Public Use
  Company Number: 2004-BP-02385NB (0)

PATIENT
  Age: 87 Year
  Sex: Female

DRUGS (1)
  1. MOBIC [Suspect]
     Indication: ARTHRITIS
     Route: 048
     Dates: end: 20040313

REACTIONS (1)
  - HAEMOLYTIC ANAEMIA [None]
